FAERS Safety Report 7433014-8 (Version None)
Quarter: 2011Q2

REPORT INFORMATION
  Report Type: 
  Country: None (occurrence: None)
  Receive Date: 20110422
  Receipt Date: 20110413
  Transmission Date: 20111010
  Serious: No
  Sender: FDA-Public Use
  Company Number: US-B.I. PHARMACEUTICALS,INC./RIDGEFIELD-2011-BP-06090BP

PATIENT
  Sex: Female

DRUGS (22)
  1. TRAMADOL HCL [Concomitant]
     Indication: BACK PAIN
     Route: 048
  2. METAMUCIL-2 [Concomitant]
  3. GLUCOSAMINE/CONDROITIN [Concomitant]
  4. PRADAXA [Suspect]
     Indication: ATRIAL FIBRILLATION
     Dosage: 300 MG
     Route: 048
     Dates: start: 20110201, end: 20110204
  5. LEVOTHYROXINE SODIUM [Concomitant]
     Indication: HYPOTHYROIDISM
     Dosage: 50 MCG
     Route: 048
  6. QUININE SULFATE [Concomitant]
     Indication: MUSCLE SPASMS
     Dosage: 300 MG
     Route: 048
  7. CENTRUM SILVER MULTIVITAMIN [Concomitant]
     Indication: ROUTINE HEALTH MAINTENANCE
     Route: 048
  8. OXYBUTYNIN [Concomitant]
     Dosage: 10 MG
  9. FISH OIL [Concomitant]
     Dosage: 2400 MG
  10. VITAMIN D [Concomitant]
  11. CYANOCOBALAMIN [Concomitant]
  12. PRADAXA [Suspect]
     Dosage: 300 MG
     Route: 048
     Dates: start: 20110220
  13. PRILOSEC [Concomitant]
     Indication: DIVERTICULITIS
     Dosage: 20 MG
     Route: 048
  14. PRILOSEC [Concomitant]
     Indication: IRRITABLE BOWEL SYNDROME
  15. ASCORBIC ACID [Concomitant]
     Indication: ROUTINE HEALTH MAINTENANCE
     Dosage: 1000 MG
     Route: 048
  16. METOPROLOL TARTRATE [Suspect]
     Dosage: 50 MG
     Route: 048
     Dates: start: 20110217
  17. OSTEO BIFLEX [Concomitant]
  18. EXTRA STRENGTH TYLENOL ARTHRITIS [Concomitant]
     Indication: BACK PAIN
     Route: 048
  19. ARTHRITIS PAIN RELIEF [Concomitant]
  20. FOLIC ACID [Concomitant]
     Dosage: 800 MG
     Route: 048
  21. METOPROLOL TARTRATE [Suspect]
     Indication: ATRIAL FIBRILLATION
     Dosage: 50 MG
     Route: 048
     Dates: start: 20110201, end: 20110203
  22. OSTEO BIFLEX [Concomitant]
     Indication: ARTHRALGIA
     Route: 048

REACTIONS (4)
  - DISCOMFORT [None]
  - NAUSEA [None]
  - ABDOMINAL PAIN UPPER [None]
  - FATIGUE [None]
